FAERS Safety Report 22383212 (Version 1)
Quarter: 2023Q2

REPORT INFORMATION
  Report Type: Spontaneous
  Country: HU (occurrence: HU)
  Receive Date: 20230530
  Receipt Date: 20230530
  Transmission Date: 20230722
  Serious: Yes (Other)
  Sender: FDA-Public Use
  Company Number: HU-009507513-2305HUN003210

PATIENT
  Age: 55 Year
  Sex: Male

DRUGS (3)
  1. PACLITAXEL [Suspect]
     Active Substance: PACLITAXEL
     Indication: Non-small cell lung cancer
     Dosage: UNK
     Route: 065
  2. CARBOPLATIN [Suspect]
     Active Substance: CARBOPLATIN
     Indication: Non-small cell lung cancer
     Dosage: UNK
     Route: 065
  3. KEYTRUDA [Suspect]
     Active Substance: PEMBROLIZUMAB
     Indication: Non-small cell lung cancer
     Dosage: UNK
     Route: 065

REACTIONS (7)
  - Pericardial haemorrhage [Recovered/Resolved]
  - Pericardial effusion [Not Recovered/Not Resolved]
  - Right ventricular failure [Unknown]
  - Pleural effusion [Not Recovered/Not Resolved]
  - Generalised oedema [Recovered/Resolved]
  - Atelectasis [Not Recovered/Not Resolved]
  - Dyspnoea [Recovered/Resolved]
